FAERS Safety Report 17456951 (Version 1)
Quarter: 2020Q1

REPORT INFORMATION
  Report Type: Spontaneous
  Country: TR (occurrence: TR)
  Receive Date: 20200225
  Receipt Date: 20200225
  Transmission Date: 20200409
  Serious: Yes (Hospitalization, Other)
  Sender: FDA-Public Use
  Company Number: TR-CASPER PHARMA LLC-2020CAS000077

PATIENT
  Age: 57 Year
  Sex: Male

DRUGS (1)
  1. BISMUTH, METRONIDAZOLE, TETRACYCLIN [Suspect]
     Active Substance: BISMUTH SUBSALICYLATE\METRONIDAZOLE\TETRACYCLINE HYDROCHLORIDE
     Indication: DIARRHOEA
     Dosage: 1000 MILLIGRAM, QD
     Route: 065

REACTIONS (2)
  - Cytotoxic oedema [Recovered/Resolved]
  - Status epilepticus [Recovered/Resolved]
